FAERS Safety Report 15822060 (Version 1)
Quarter: 2019Q1

REPORT INFORMATION
  Report Type: Spontaneous
  Country: US (occurrence: US)
  Receive Date: 20190114
  Receipt Date: 20190114
  Transmission Date: 20190417
  Serious: Yes (Life-Threatening, Hospitalization, Disabling)
  Sender: FDA-Public Use
  Company Number: None

PATIENT
  Sex: Male
  Weight: 54 kg

DRUGS (5)
  1. MONTELUKAST [Suspect]
     Active Substance: MONTELUKAST SODIUM
     Indication: HYPERSENSITIVITY
     Dosage: ?          QUANTITY:1 TABLET(S);?
     Route: 048
  2. ESSENTIAL OILS. [Concomitant]
     Active Substance: ESSENTIAL OILS
  3. THERAPY [Concomitant]
  4. EPSOM SALT BATHS [Concomitant]
  5. WATER. [Concomitant]
     Active Substance: WATER

REACTIONS (7)
  - Nightmare [None]
  - Psychomotor hyperactivity [None]
  - Depression [None]
  - Disturbance in attention [None]
  - Suicidal ideation [None]
  - Hallucination [None]
  - Insomnia [None]
